FAERS Safety Report 5035325-2 (Version None)
Quarter: 2006Q2

REPORT INFORMATION
  Report Type: 
  Country: None (occurrence: None)
  Receive Date: 20060519
  Receipt Date: 20060412
  Transmission Date: 20061013
  Serious: No
  Sender: FDA-Public Use
  Company Number: TPA2006A00368

PATIENT
  Sex: Female
  Weight: 72.5755 kg

DRUGS (4)
  1. ROZEREM [Suspect]
     Indication: ANXIETY
     Dosage: 8 MG, PER ORAL
     Route: 048
     Dates: start: 20060101
  2. ROZEREM [Suspect]
     Indication: INSOMNIA
     Dosage: 8 MG, PER ORAL
     Route: 048
     Dates: start: 20060101
  3. ZOLOFT [Concomitant]
  4. KLONOPIN(CLONAZEPAM) (0.5 MILLIGRAM, TABLETS) [Concomitant]

REACTIONS (4)
  - AGITATION [None]
  - ANXIETY [None]
  - PANIC ATTACK [None]
  - POOR QUALITY SLEEP [None]
